FAERS Safety Report 7820123 (Version 2)
Quarter: 2012Q4

REPORT INFORMATION
  Report Type: 
  Country: US (occurrence: US)
  Receive Date: 20110221
  Receipt Date: 20121211
  Transmission Date: 20130627
  Serious: Yes (Hospitalization, Other)
  Sender: FDA-Public Use
  Company Number: US-ROCHE-734035

PATIENT
  Sex: Male
  Weight: 85.7 kg

DRUGS (9)
  1. ACCUTANE [Suspect]
     Indication: ACNE
     Route: 065
  2. ACCUTANE [Suspect]
     Dosage: 40 MG 1 BID ON EVEN DAYS AND 1 DAILY ON ODD DAYS
     Route: 065
  3. ACCUTANE [Suspect]
     Route: 065
     Dates: start: 19940518, end: 1994
  4. ACCUTANE [Suspect]
     Route: 065
  5. NITRO SPRAY [Concomitant]
     Dosage: DOSE: 40 SEC UVC
     Route: 065
  6. BETAVAL [Concomitant]
  7. BENZAMYCIN [Concomitant]
     Route: 065
  8. SALAC [Concomitant]
     Dosage: WASH ONCE OR TWICE DAILY
     Route: 065
  9. EES [Concomitant]
     Route: 065

REACTIONS (6)
  - Colitis ulcerative [Unknown]
  - Gastrointestinal injury [Unknown]
  - Gastrointestinal disorder [Unknown]
  - Peptic ulcer [Unknown]
  - Irritable bowel syndrome [Unknown]
  - Pityriasis rosea [Unknown]
